FAERS Safety Report 7385376-8 (Version None)
Quarter: 2011Q1

REPORT INFORMATION
  Report Type: 
  Country: None (occurrence: None)
  Receive Date: 20110330
  Receipt Date: 20110214
  Transmission Date: 20110831
  Serious: No
  Sender: FDA-Public Use
  Company Number: US-MYLANLABS-2010S1022158

PATIENT
  Age: 55 Year
  Sex: Male

DRUGS (5)
  1. TESTOSTERONE [Suspect]
     Route: 062
     Dates: start: 20090101
  2. VITAMIN D [Concomitant]
  3. EMSAM [Suspect]
     Indication: DEPRESSION
     Dosage: QD
     Route: 062
     Dates: start: 20100101
  4. XANAX [Concomitant]
  5. MULTI-VITAMIN [Concomitant]

REACTIONS (2)
  - APPLICATION SITE URTICARIA [None]
  - APPLICATION SITE ERYTHEMA [None]
